FAERS Safety Report 25071886 (Version 2)
Quarter: 2025Q4

REPORT INFORMATION
  Report Type: Spontaneous
  Country: EU (occurrence: EU)
  Receive Date: 20250313
  Receipt Date: 20251118
  Transmission Date: 20260117
  Serious: Yes (Other)
  Sender: VELOXIS PHARMACEUTICALS
  Company Number: EU-ROCHE-2714831

PATIENT
  Age: 11 Year
  Sex: Male
  Weight: 23 kg

DRUGS (11)
  1. TACROLIMUS [Suspect]
     Active Substance: TACROLIMUS
     Indication: Nephrotic syndrome
     Dosage: UNK;  (DRUG WITHDRAWN: DURATION AFTER 5.7 WEEKS)
  2. TACROLIMUS [Suspect]
     Active Substance: TACROLIMUS
     Indication: Off label use
  3. PREDNISONE [Suspect]
     Active Substance: PREDNISONE
     Indication: Nephrotic syndrome
     Dosage: 20 MILLIGRAM, QD (AFTER DARATUMUMAB INFUSION)
  4. PREDNISONE [Suspect]
     Active Substance: PREDNISONE
     Dosage: 60 MILLIGRAM/SQ. METER, BID
  5. PREDNISONE [Suspect]
     Active Substance: PREDNISONE
     Dosage: UNK, 2 WEEKS, BID
  6. METHYLPREDNISOLONE [Suspect]
     Active Substance: METHYLPREDNISOLONE
     Indication: Nephrotic syndrome
     Dosage: 1 MILLIGRAM/KILOGRAM
     Route: 065
  7. OBINUTUZUMAB [Suspect]
     Active Substance: OBINUTUZUMAB
     Indication: Nephrotic syndrome
     Dosage: 600 MG (1000 MG/1.73 M2 OVER 4 H WAS INJECTED AT DAY 0), SOLUTION FOR INFUSION
  8. DARATUMUMAB [Suspect]
     Active Substance: DARATUMUMAB
     Indication: Nephrotic syndrome
     Dosage: 600 MG (1000 MG/1.73 M2 OVER 4 H) AT DAY 14
     Route: 065
  9. ACETAMINOPHEN [Concomitant]
     Active Substance: ACETAMINOPHEN
     Indication: Product used for unknown indication
     Dosage: 15 MILLIGRAM/KILOGRAM
     Route: 065
  10. SULFAMETHOXAZOLE [Concomitant]
     Active Substance: SULFAMETHOXAZOLE
     Indication: Product used for unknown indication
     Dosage: 800 MILLIGRAM, 0.33 WEEK
     Route: 065
  11. DEXCHLORPHENIRAMINE [Concomitant]
     Active Substance: DEXCHLORPHENIRAMINE
     Indication: Product used for unknown indication
     Dosage: UNK
     Route: 065

REACTIONS (3)
  - Hypogammaglobulinaemia [Unknown]
  - Off label use [Recovered/Resolved]
  - Off label use [Recovered/Resolved]
